FAERS Safety Report 11266463 (Version 1)
Quarter: 2015Q3

REPORT INFORMATION
  Report Type: Spontaneous
  Country: IT (occurrence: IT)
  Receive Date: 20150713
  Receipt Date: 20150713
  Transmission Date: 20151125
  Serious: Yes (Hospitalization)
  Sender: FDA-Public Use
  Company Number: IT-BAYER-2015-371228

PATIENT
  Age: 73 Year
  Sex: Female

DRUGS (16)
  1. LASIX [Concomitant]
     Active Substance: FUROSEMIDE
     Route: 048
  2. SIVASTIN [Concomitant]
     Active Substance: SIMVASTATIN
     Route: 048
  3. COUMADIN [Suspect]
     Active Substance: WARFARIN SODIUM
     Indication: DEEP VEIN THROMBOSIS
     Dosage: 27.5 MG, UNK
     Route: 048
     Dates: start: 20120401, end: 20150408
  4. PHOSLO [Concomitant]
     Active Substance: CALCIUM ACETATE
  5. MIMPARA [CINACALCET HYDROCHLORIDE] [Concomitant]
     Route: 048
  6. ESAPENT [Concomitant]
     Route: 048
  7. ROCALTROL [Concomitant]
     Active Substance: CALCITRIOL
     Route: 048
  8. CARDIOASPIRIN [Suspect]
     Active Substance: ASPIRIN
     Indication: PROPHYLAXIS
     Dosage: 100 MG, QD
     Route: 048
     Dates: start: 20140401, end: 20150408
  9. BENERVA [Concomitant]
     Active Substance: THIAMINE
  10. DIDROGYL [Concomitant]
     Route: 048
  11. RANEXA [Concomitant]
     Active Substance: RANOLAZINE
     Route: 048
  12. ZYLORIC [Concomitant]
     Active Substance: ALLOPURINOL
     Route: 048
  13. ESOPRAL [Concomitant]
     Active Substance: ESOMEPRAZOLE MAGNESIUM
     Route: 048
  14. LEVEMIR [Concomitant]
     Active Substance: INSULIN DETEMIR
     Dosage: UNK U/ML, UNK
     Route: 058
  15. DILATREND [Concomitant]
     Active Substance: CARVEDILOL
     Route: 048
  16. NOVORAPID [Concomitant]
     Active Substance: INSULIN ASPART

REACTIONS (1)
  - Haematoma [Recovered/Resolved]

NARRATIVE: CASE EVENT DATE: 20150409
